FAERS Safety Report 20331469 (Version 1)
Quarter: 2022Q1

REPORT INFORMATION
  Report Type: Spontaneous
  Country: US (occurrence: None)
  Receive Date: 20220112
  Receipt Date: 20220112
  Transmission Date: 20220423
  Serious: No
  Sender: FDA-Public Use
  Company Number: None

PATIENT
  Age: 50 Year
  Sex: Female

DRUGS (1)
  1. STELARA [Suspect]
     Active Substance: USTEKINUMAB
     Indication: Crohn^s disease
     Dosage: OTHER FREQUENCY : ONCE EVERY 8 WEEKS;?
     Route: 058
     Dates: start: 20180820

REACTIONS (3)
  - Frequent bowel movements [None]
  - Abdominal pain [None]
  - Inflammation [None]

NARRATIVE: CASE EVENT DATE: 20211101
